FAERS Safety Report 25422892 (Version 1)
Quarter: 2025Q2

REPORT INFORMATION
  Report Type: Spontaneous
  Country: JP (occurrence: JP)
  Receive Date: 20250611
  Receipt Date: 20250611
  Transmission Date: 20250717
  Serious: Yes (Hospitalization, Other)
  Sender: Norvium Bioscience
  Company Number: JP-Norvium Bioscience LLC-080242

PATIENT
  Age: 49 Year
  Sex: Male
  Weight: 89.4 kg

DRUGS (3)
  1. QUETIAPINE FUMARATE [Suspect]
     Active Substance: QUETIAPINE FUMARATE
     Indication: Bipolar disorder
  2. QUETIAPINE FUMARATE [Suspect]
     Active Substance: QUETIAPINE FUMARATE
     Indication: Bipolar disorder
     Dosage: DOUBLED, SIX MONTHS EARLIER
  3. QUETIAPINE FUMARATE [Suspect]
     Active Substance: QUETIAPINE FUMARATE
     Indication: Bipolar disorder
     Dosage: INITIATED NINE YEARS BEFORE PRESENTATION

REACTIONS (4)
  - Diabetic ketosis [Recovered/Resolved]
  - Drug ineffective [Unknown]
  - Serotonin deficiency [Unknown]
  - Ketosis-prone diabetes mellitus [Unknown]
